FAERS Safety Report 11485015 (Version 2)
Quarter: 2015Q3

REPORT INFORMATION
  Report Type: Spontaneous
  Country: US (occurrence: US)
  Receive Date: 20150903
  Receipt Date: 20150903
  Transmission Date: 20151125
  Serious: No
  Sender: FDA-Public Use
  Company Number: US-ELI_LILLY_AND_COMPANY-US201108008126

PATIENT
  Age: 67 Year
  Sex: Male

DRUGS (6)
  1. LORAZEPAM. [Concomitant]
     Active Substance: LORAZEPAM
  2. CAFFEINE. [Concomitant]
     Active Substance: CAFFEINE
  3. OMEPRAZOLE. [Concomitant]
     Active Substance: OMEPRAZOLE
  4. DIOVAN [Concomitant]
     Active Substance: VALSARTAN
  5. SIMVASTATIN. [Concomitant]
     Active Substance: SIMVASTATIN
     Dosage: 10 MG, UNK
  6. CYMBALTA [Suspect]
     Active Substance: DULOXETINE HYDROCHLORIDE
     Indication: GENERALISED ANXIETY DISORDER
     Dosage: 30 MG, QD
     Dates: start: 20110819, end: 20110823

REACTIONS (4)
  - Feeling abnormal [Unknown]
  - Anxiety [Unknown]
  - Panic attack [Not Recovered/Not Resolved]
  - Decreased activity [Unknown]

NARRATIVE: CASE EVENT DATE: 20110819
